FAERS Safety Report 7652996-2 (Version None)
Quarter: 2011Q3

REPORT INFORMATION
  Report Type: 
  Country: None (occurrence: None)
  Receive Date: 20110803
  Receipt Date: 20110728
  Transmission Date: 20111222
  Serious: No
  Sender: FDA-Public Use
  Company Number: US-ROCHE-789665

PATIENT
  Sex: Female
  Weight: 64 kg

DRUGS (6)
  1. VITAMIN D [Concomitant]
     Indication: VITAMIN D DEFICIENCY
     Route: 048
     Dates: start: 20080101
  2. ZINC/CALCIUM [Concomitant]
  3. ZOCOR [Concomitant]
     Route: 048
     Dates: start: 20080101
  4. FILENA [Concomitant]
  5. BONIVA [Suspect]
     Indication: OSTEOPOROSIS
     Route: 048
     Dates: start: 20090713, end: 20110701
  6. SYNTHROID [Concomitant]
     Indication: HYPOTHYROIDISM
     Dosage: STARTED MORE THAN 10 YEARS AGO
     Route: 048

REACTIONS (1)
  - PAIN IN JAW [None]
